FAERS Safety Report 9251535 (Version 1)
Quarter: 2013Q1

REPORT INFORMATION
  Report Type: Spontaneous
  Country: US (occurrence: None)
  Receive Date: 20130305
  Receipt Date: 20130305
  Transmission Date: 20140127
  Serious: Yes (Other)
  Sender: FDA-Public Use
  Company Number: 163-21880-12040778

PATIENT
  Age: 58 Year
  Sex: Female

DRUGS (9)
  1. REVLIMID [Suspect]
     Indication: PLASMA CELL MYELOMA
     Route: 048
     Dates: start: 20120221
  2. SYNTHROID(LEVOTHYROXINE SODIUM) (UNKNOWN) [Concomitant]
  3. PRILOSEC(OMEPRAZOLE) (UNKNOWN) [Concomitant]
  4. ONDANSETRON(ONDANSETRON)(UNKNOWN) [Concomitant]
  5. DEXAMETHASONE(DEXAMETHASONE)(UNKNOWN) [Concomitant]
  6. ACYCLOVIR(ACICLOVIR)(UNKNOWN) [Concomitant]
  7. ASPIRIN(ACETYLSALICYLIC ACID) (UNKNOWN) [Concomitant]
  8. VELCADE(BORTEZOMIB) (UNKNOWN) [Concomitant]
  9. ISONIAZIDE(ISONIAZID) (UNKNOWN) [Concomitant]

REACTIONS (5)
  - Hypersensitivity [None]
  - Swelling face [None]
  - Pruritus [None]
  - Rash [None]
  - Fatigue [None]
